FAERS Safety Report 5699939-9 (Version None)
Quarter: 2008Q2

REPORT INFORMATION
  Report Type: 
  Country: None (occurrence: None)
  Receive Date: 20080410
  Receipt Date: 20080328
  Transmission Date: 20081010
  Serious: Yes (Hospitalization)
  Sender: FDA-Public Use
  Company Number: IT-MERCK-0802ITA00032

PATIENT
  Age: 40 Year
  Sex: Female

DRUGS (7)
  1. ISENTRESS [Suspect]
     Indication: HIV INFECTION
     Route: 065
     Dates: start: 20071223, end: 20080201
  2. ISENTRESS [Suspect]
     Route: 065
     Dates: start: 20080201, end: 20080301
  3. ANTIVIRAL (UNSPECIFIED) [Concomitant]
     Route: 065
  4. ETHAMBUTOL HYDROCHLORIDE [Suspect]
     Route: 065
     Dates: start: 20080123, end: 20080101
  5. CLARITHROMYCIN [Concomitant]
     Route: 048
     Dates: start: 20080123, end: 20080201
  6. CIPROFLOXACIN HYDROCHLORIDE [Concomitant]
     Route: 048
     Dates: start: 20080123, end: 20080201
  7. ISONIAZID [Concomitant]
     Route: 048
     Dates: start: 20080123, end: 20080201

REACTIONS (2)
  - IMMUNE RECONSTITUTION SYNDROME [None]
  - STEVENS-JOHNSON SYNDROME [None]
